FAERS Safety Report 20857035 (Version 1)
Quarter: 2022Q2

REPORT INFORMATION
  Report Type: Spontaneous
  Country: US (occurrence: US)
  Receive Date: 20220520
  Receipt Date: 20220520
  Transmission Date: 20220721
  Serious: No
  Sender: FDA-Public Use
  Company Number: US-SANOFI-01102640

PATIENT
  Sex: Female

DRUGS (16)
  1. DUPIXENT [Suspect]
     Active Substance: DUPILUMAB
  2. ACRIVASTINE [Concomitant]
     Active Substance: ACRIVASTINE
     Indication: Injection site swelling
  3. ACRIVASTINE [Concomitant]
     Active Substance: ACRIVASTINE
     Indication: Injection site erythema
  4. ACRIVASTINE [Concomitant]
     Active Substance: ACRIVASTINE
     Indication: Injection site pruritus
  5. ACRIVASTINE [Concomitant]
     Active Substance: ACRIVASTINE
     Indication: Vision blurred
  6. ACRIVASTINE [Concomitant]
     Active Substance: ACRIVASTINE
     Indication: Dizziness
  7. HYDROCORTISONE [Concomitant]
     Active Substance: HYDROCORTISONE
     Indication: Vision blurred
  8. HYDROCORTISONE [Concomitant]
     Active Substance: HYDROCORTISONE
     Indication: Dizziness
  9. HYDROCORTISONE [Concomitant]
     Active Substance: HYDROCORTISONE
     Indication: Injection site pruritus
  10. HYDROCORTISONE [Concomitant]
     Active Substance: HYDROCORTISONE
     Indication: Injection site erythema
  11. HYDROCORTISONE [Concomitant]
     Active Substance: HYDROCORTISONE
     Indication: Injection site swelling
  12. PREDNISONE [Concomitant]
     Active Substance: PREDNISONE
     Indication: Vision blurred
  13. PREDNISONE [Concomitant]
     Active Substance: PREDNISONE
     Indication: Dizziness
  14. PREDNISONE [Concomitant]
     Active Substance: PREDNISONE
     Indication: Injection site swelling
  15. PREDNISONE [Concomitant]
     Active Substance: PREDNISONE
     Indication: Injection site erythema
  16. PREDNISONE [Concomitant]
     Active Substance: PREDNISONE
     Indication: Injection site pruritus

REACTIONS (6)
  - Injection site pruritus [Unknown]
  - Vision blurred [Unknown]
  - Dizziness [Unknown]
  - Injection site swelling [Unknown]
  - Condition aggravated [Unknown]
  - Injection site erythema [Unknown]
